FAERS Safety Report 17818021 (Version 1)
Quarter: 2020Q2

REPORT INFORMATION
  Report Type: Spontaneous
  Country: CN (occurrence: CN)
  Receive Date: 20200522
  Receipt Date: 20200522
  Transmission Date: 20200714
  Serious: Yes (Other)
  Sender: FDA-Public Use
  Company Number: CN-SA-2020SA011166

PATIENT
  Age: 80 Year
  Sex: Male
  Weight: 65 kg

DRUGS (4)
  1. COAPROVEL [Suspect]
     Active Substance: HYDROCHLOROTHIAZIDE\IRBESARTAN
     Indication: HYPERTENSION
     Dosage: 1 DF, QD
     Route: 048
     Dates: start: 2009
  2. NORVASC [Concomitant]
     Active Substance: AMLODIPINE BESYLATE
     Indication: HYPERTENSION
     Dosage: UNK UNK, BID 1 TAB IN MORNING,0.5 TAB IN THE AFTERNOON
     Route: 048
  3. COAPROVEL [Suspect]
     Active Substance: HYDROCHLOROTHIAZIDE\IRBESARTAN
     Dosage: 0.5 DF, QD
     Route: 048
     Dates: start: 20200104
  4. APROVEL [Suspect]
     Active Substance: IRBESARTAN
     Indication: HYPERTENSION
     Dosage: 1 DF, QD
     Route: 048
     Dates: start: 2009, end: 2009

REACTIONS (12)
  - Oedema peripheral [Unknown]
  - Cough [Unknown]
  - Pollakiuria [Recovering/Resolving]
  - Nocturia [Unknown]
  - Blood uric acid increased [Recovering/Resolving]
  - Oedema peripheral [Recovering/Resolving]
  - Pruritus [Unknown]
  - Arrhythmia [Unknown]
  - Blood pressure systolic increased [Unknown]
  - Blood pressure systolic decreased [Recovering/Resolving]
  - Wrong technique in product usage process [Unknown]
  - Blood glucose increased [Unknown]
